FAERS Safety Report 6679334-6 (Version None)
Quarter: 2010Q2

REPORT INFORMATION
  Report Type: 
  Country: None (occurrence: None)
  Receive Date: 20100413
  Receipt Date: 20100401
  Transmission Date: 20101027
  Serious: Yes (Other)
  Sender: FDA-Public Use
  Company Number: US-PFIZER INC-2009230600

PATIENT
  Sex: Female
  Weight: 86 kg

DRUGS (11)
  1. REVATIO [Suspect]
     Indication: PULMONARY ARTERIAL HYPERTENSION
     Dosage: 40 MG, UNK
     Dates: start: 20050701
  2. REMODULIN [Suspect]
     Dosage: 94 NG/KG/MIN
     Route: 042
     Dates: start: 20070101
  3. LASIX [Concomitant]
     Dosage: 60 MG, 3X/DAY
  4. PREMARIN [Concomitant]
     Dosage: UNK
  5. NEXIUM [Concomitant]
     Dosage: UNK
  6. MAGNESIUM [Concomitant]
     Dosage: UNK
  7. CLARITIN [Concomitant]
     Dosage: UNK
  8. INSULIN [Concomitant]
     Dosage: UNK
  9. OXYGEN [Concomitant]
     Dosage: UNK
  10. AMBRISENTAN [Concomitant]
     Dosage: 10 MG, 1X/DAY
  11. POTASSIUM CHLORIDE [Concomitant]
     Dosage: 20 MEQ, 2X/DAY

REACTIONS (6)
  - ANXIETY [None]
  - ASCITES [None]
  - HYPERTENSION [None]
  - OEDEMA [None]
  - RIGHT VENTRICULAR FAILURE [None]
  - TACHYCARDIA [None]
